FAERS Safety Report 6752974-1 (Version None)
Quarter: 2010Q2

REPORT INFORMATION
  Report Type: 
  Country: None (occurrence: None)
  Receive Date: 20100602
  Receipt Date: 20100602
  Transmission Date: 20101027
  Serious: Yes (Disabling, Other)
  Sender: FDA-Public Use
  Company Number: None

PATIENT
  Age: 45 Year
  Sex: Female
  Weight: 63.5036 kg

DRUGS (1)
  1. LITHOBID [Suspect]
     Indication: BIPOLAR DISORDER
     Dosage: 300 MG 3X DAY ORAL
     Route: 048
     Dates: start: 19851101, end: 20071101

REACTIONS (1)
  - GLOMERULONEPHRITIS CHRONIC [None]
